FAERS Safety Report 9303841 (Version 2)
Quarter: 2013Q3

REPORT INFORMATION
  Report Type: Spontaneous
  Country: US (occurrence: US)
  Receive Date: 20130522
  Receipt Date: 20130828
  Transmission Date: 20140515
  Serious: Yes (Hospitalization)
  Sender: FDA-Public Use
  Company Number: US-JNJFOC-20130505620

PATIENT
  Age: 46 Year
  Sex: Female

DRUGS (1)
  1. INVEGA SUSTENNA [Suspect]
     Indication: SCHIZOPHRENIA
     Route: 030
     Dates: start: 20130212, end: 201303

REACTIONS (3)
  - Extrapyramidal disorder [Recovered/Resolved]
  - Swollen tongue [Unknown]
  - Dyspnoea [Unknown]
